FAERS Safety Report 6664139-2 (Version None)
Quarter: 2010Q2

REPORT INFORMATION
  Report Type: 
  Country: None (occurrence: None)
  Receive Date: 20100401
  Receipt Date: 20100324
  Transmission Date: 20101027
  Serious: Yes (Hospitalization)
  Sender: FDA-Public Use
  Company Number: B0643046A

PATIENT
  Sex: Female
  Weight: 28 kg

DRUGS (1)
  1. AUGMENTIN '125' [Suspect]
     Indication: RESPIRATORY DISORDER
     Dosage: 10ML PER DAY
     Route: 065
     Dates: start: 20100212, end: 20100218

REACTIONS (3)
  - RASH [None]
  - STREPTOCOCCAL IMPETIGO [None]
  - TOXIC SKIN ERUPTION [None]
